FAERS Safety Report 9405079 (Version 1)
Quarter: 2013Q3

REPORT INFORMATION
  Report Type: Spontaneous
  Country: US (occurrence: US)
  Receive Date: 20130717
  Receipt Date: 20130717
  Transmission Date: 20140515
  Serious: No
  Sender: FDA-Public Use
  Company Number: US-BRISTOL-MYERS SQUIBB COMPANY-18897090

PATIENT
  Age: 59 Year
  Sex: Female

DRUGS (5)
  1. YERVOY [Suspect]
     Dosage: LAST INF:22APR2013?HAD 1 INF
  2. VALIUM [Concomitant]
  3. FLEXERIL [Concomitant]
  4. OXYCONTIN [Concomitant]
  5. OXYCODONE [Concomitant]

REACTIONS (3)
  - Micturition frequency decreased [Unknown]
  - Urine output decreased [Unknown]
  - Specific gravity urine abnormal [Unknown]
